FAERS Safety Report 6655087-2 (Version None)
Quarter: 2010Q1

REPORT INFORMATION
  Report Type: 
  Country: None (occurrence: None)
  Receive Date: 20100329
  Receipt Date: 20100316
  Transmission Date: 20100710
  Serious: Yes (Other)
  Sender: FDA-Public Use
  Company Number: KP-RANBAXY-2008RR-17761

PATIENT

DRUGS (2)
  1. CEFAZOLIN [Suspect]
     Dosage: 500 MG, UNK
     Route: 037
  2. MIDAZOLAM HCL [Concomitant]
     Indication: COMA

REACTIONS (3)
  - DYSPHAGIA [None]
  - SPEECH DISORDER [None]
  - STATUS EPILEPTICUS [None]
